FAERS Safety Report 10394792 (Version 2)
Quarter: 2014Q4

REPORT INFORMATION
  Report Type: Report from Study
  Country: IT (occurrence: IT)
  Receive Date: 20140820
  Receipt Date: 20141001
  Transmission Date: 20150528
  Serious: No
  Sender: FDA-Public Use
  Company Number: IT-ROCHE-1449076

PATIENT
  Age: 33 Year
  Sex: Female
  Weight: 57 kg

DRUGS (1)
  1. VEMURAFENIB [Suspect]
     Active Substance: VEMURAFENIB
     Indication: MALIGNANT MELANOMA
     Dosage: DATE OF LAST DOSE PRIOR TO SAE 07/AUG/2014
     Route: 048
     Dates: start: 20140722

REACTIONS (1)
  - Chest pain [Recovered/Resolved]

NARRATIVE: CASE EVENT DATE: 20140807
